FAERS Safety Report 26193466 (Version 1)
Quarter: 2025Q4

REPORT INFORMATION
  Report Type: Spontaneous
  Country: US (occurrence: US)
  Receive Date: 20251223
  Receipt Date: 20251223
  Transmission Date: 20260118
  Serious: No
  Sender: MERCK SHARP & DOHME LLC
  Company Number: US-009507513-2358016

PATIENT
  Sex: Female
  Weight: 81.647 kg

DRUGS (27)
  1. WINREVAIR [Suspect]
     Active Substance: SOTATERCEPT-CSRK
  2. WINREVAIR [Suspect]
     Active Substance: SOTATERCEPT-CSRK
  3. WINREVAIR [Suspect]
     Active Substance: SOTATERCEPT-CSRK
  4. WINREVAIR [Suspect]
     Active Substance: SOTATERCEPT-CSRK
  5. TYVASO DPI [Suspect]
     Active Substance: TREPROSTINIL
     Indication: Pulmonary arterial hypertension
     Route: 055
     Dates: start: 20221230
  6. AMBIEN [Concomitant]
     Active Substance: ZOLPIDEM TARTRATE
  7. FUROSCIX [Concomitant]
     Active Substance: FUROSEMIDE
  8. VITAMIN D2 [Concomitant]
     Active Substance: ERGOCALCIFEROL
  9. TADALAFIL [Concomitant]
     Active Substance: TADALAFIL
  10. NOVOLOG [Concomitant]
     Active Substance: INSULIN ASPART
  11. PREVACID [Concomitant]
     Active Substance: LANSOPRAZOLE
  12. AZATHIOPRINE [Concomitant]
     Active Substance: AZATHIOPRINE
  13. ALBUTEROL SULFATE [Concomitant]
     Active Substance: ALBUTEROL SULFATE
  14. NEURONTIN [Concomitant]
     Active Substance: GABAPENTIN
  15. LANTUS SOLOSTAR [Concomitant]
     Active Substance: INSULIN GLARGINE
  16. LASIX [Concomitant]
     Active Substance: FUROSEMIDE
  17. NORVASC [Concomitant]
     Active Substance: AMLODIPINE BESYLATE
  18. SYNTHROID [Concomitant]
     Active Substance: LEVOTHYROXINE SODIUM
  19. PREDNISONE [Concomitant]
     Active Substance: PREDNISONE
  20. OXYGEN [Concomitant]
     Active Substance: OXYGEN
  21. FENTANYL [Concomitant]
     Active Substance: FENTANYL
  22. METHADONE HYDROCHLORIDE [Concomitant]
     Active Substance: METHADONE HYDROCHLORIDE
  23. CELLCEPT [Concomitant]
     Active Substance: MYCOPHENOLATE MOFETIL
  24. ZOVIRAX [Concomitant]
     Active Substance: ACYCLOVIR
  25. TAMIFLU [Concomitant]
     Active Substance: OSELTAMIVIR PHOSPHATE
  26. AMBRISENTAN [Concomitant]
     Active Substance: AMBRISENTAN
  27. MOVANTIK [Concomitant]
     Active Substance: NALOXEGOL OXALATE

REACTIONS (2)
  - Dyspnoea [Unknown]
  - Haemoglobin increased [Unknown]
